FAERS Safety Report 15602277 (Version 2)
Quarter: 2018Q4

REPORT INFORMATION
  Report Type: Report from Study
  Country: ES (occurrence: ES)
  Receive Date: 20181109
  Receipt Date: 20181219
  Transmission Date: 20190205
  Serious: Yes (Hospitalization)
  Sender: FDA-Public Use
  Company Number: ES-ASTRAZENECA-2018SF36670

PATIENT
  Age: 22565 Day
  Sex: Female

DRUGS (5)
  1. CEFUROXIME. [Concomitant]
     Active Substance: CEFUROXIME
     Indication: BILIARY COLIC
     Route: 048
     Dates: start: 20181015
  2. OMEPRAZOLE. [Concomitant]
     Active Substance: OMEPRAZOLE
     Indication: GASTROINTESTINAL PAIN
     Route: 048
     Dates: start: 20181031
  3. CHONDROITIN SULFATE [Concomitant]
     Active Substance: CHONDROITIN SULFATE (BOVINE)
     Indication: ARTHRITIS
     Route: 048
     Dates: start: 20181006
  4. FULVESTRANT. [Suspect]
     Active Substance: FULVESTRANT
     Indication: BREAST CANCER METASTATIC
     Dosage: 800MG EVERY 21 DAYS
     Route: 030
     Dates: start: 20180608
  5. PALBOCICLIB [Suspect]
     Active Substance: PALBOCICLIB
     Indication: BREAST CANCER METASTATIC
     Route: 048
     Dates: start: 20180608, end: 20181015

REACTIONS (1)
  - Cholecystitis infective [Recovering/Resolving]

NARRATIVE: CASE EVENT DATE: 20181015
